FAERS Safety Report 17588256 (Version 1)
Quarter: 2020Q1

REPORT INFORMATION
  Report Type: Spontaneous
  Country: ES (occurrence: ES)
  Receive Date: 20200326
  Receipt Date: 20200326
  Transmission Date: 20200409
  Serious: Yes (Other)
  Sender: FDA-Public Use
  Company Number: ES-NOVOPROD-719279

PATIENT
  Age: 63 Year
  Sex: Male
  Weight: 103 kg

DRUGS (7)
  1. SINTROM [Suspect]
     Active Substance: ACENOCOUMAROL
     Indication: ATRIAL FIBRILLATION
     Dosage: UNK (TABLET)
     Route: 048
     Dates: start: 2008
  2. NASONEX [Concomitant]
     Active Substance: MOMETASONE FUROATE
     Indication: RESPIRATORY FAILURE
     Dosage: 50 MICROGRAM (SPRAY PACK)
     Route: 045
     Dates: start: 20190901
  3. FUROSEMIDA [FUROSEMIDE] [Concomitant]
     Active Substance: FUROSEMIDE
     Indication: CARDIAC FAILURE
     Dosage: 80 MG, QD (TABLET)
     Route: 048
  4. EMCONCOR COR [Concomitant]
     Active Substance: BISOPROLOL
     Indication: CARDIAC FAILURE
     Dosage: UNK
     Route: 065
  5. OZEMPIC [Suspect]
     Active Substance: SEMAGLUTIDE
     Indication: DIABETES MELLITUS
     Dosage: UNK
     Route: 058
     Dates: start: 20191009
  6. PARACETAMOL [Concomitant]
     Active Substance: ACETAMINOPHEN
     Indication: PAIN
     Dosage: 1 G, QD (FILM COATED TABLETS)
     Route: 048
     Dates: start: 20191101
  7. METFORMINA ALMUS [Concomitant]
     Indication: DIABETES MELLITUS
     Dosage: 1700 MG, QD (FILM COATED TABLET)
     Route: 048
     Dates: start: 20160101

REACTIONS (1)
  - Alopecia [Not Recovered/Not Resolved]

NARRATIVE: CASE EVENT DATE: 201910
